FAERS Safety Report 9413536 (Version 1)
Quarter: 2013Q2

REPORT INFORMATION
  Report Type: Spontaneous
  Country: GB (occurrence: None)
  Receive Date: 20130415
  Receipt Date: 20130415
  Transmission Date: 20140414
  Serious: Yes (Hospitalization)
  Sender: FDA-Public Use
  Company Number: 221119

PATIENT
  Sex: Female

DRUGS (1)
  1. INNOHEP (TINZAPARIN SODIUM) [Suspect]
     Indication: DIALYSIS
     Route: 040

REACTIONS (5)
  - Agitation [None]
  - Nervousness [None]
  - Dizziness [None]
  - Loss of consciousness [None]
  - Respiratory arrest [None]
